FAERS Safety Report 4753050-X (Version None)
Quarter: 2005Q3

REPORT INFORMATION
  Report Type: 
  Country: None (occurrence: None)
  Receive Date: 20050826
  Receipt Date: 20050427
  Transmission Date: 20060218
  Serious: Yes (Hospitalization, Disabling)
  Sender: FDA-Public Use
  Company Number: US-MERCK-0505USA00262

PATIENT
  Age: 60 Year
  Sex: Female

DRUGS (29)
  1. VIOXX [Suspect]
     Indication: ARTHRITIS
     Route: 048
     Dates: start: 20000613, end: 20040927
  2. VIOXX [Suspect]
     Indication: SYSTEMIC LUPUS ERYTHEMATOSUS
     Route: 048
     Dates: start: 20000613, end: 20040927
  3. ATIVAN [Concomitant]
     Route: 065
  4. GOLYTELY [Concomitant]
     Route: 065
  5. PREMPRO [Concomitant]
     Indication: MENOPAUSE
     Route: 065
  6. MEDROXYPROGESTERONE ACETATE [Concomitant]
     Route: 065
  7. [THERAPY UNSPECIFIED] [Concomitant]
     Route: 065
  8. PLAQUENIL [Concomitant]
     Indication: SYSTEMIC LUPUS ERYTHEMATOSUS
     Route: 065
  9. TRIAMCINOLONE [Concomitant]
     Route: 065
  10. REMICADE [Concomitant]
     Indication: SYSTEMIC LUPUS ERYTHEMATOSUS
     Route: 065
     Dates: start: 20020601
  11. REMICADE [Concomitant]
     Route: 065
     Dates: start: 20020601
  12. REMICADE [Concomitant]
     Route: 065
     Dates: start: 20020601
  13. REMICADE [Concomitant]
     Route: 065
     Dates: start: 20020601
  14. REMICADE [Concomitant]
     Route: 065
     Dates: start: 20020601
  15. REMICADE [Concomitant]
     Route: 065
     Dates: start: 20020601
  16. REMICADE [Concomitant]
     Route: 065
     Dates: start: 20020601
  17. REMICADE [Concomitant]
     Route: 065
     Dates: start: 20020601
  18. REMICADE [Concomitant]
     Route: 065
     Dates: start: 20020601
  19. REMICADE [Concomitant]
     Route: 065
     Dates: start: 20020601
  20. REMICADE [Concomitant]
     Route: 065
     Dates: start: 20020601
  21. CELLCEPT [Concomitant]
     Indication: SYSTEMIC LUPUS ERYTHEMATOSUS
     Route: 065
  22. ALBUTEROL [Concomitant]
     Route: 065
  23. ADVAIR DISKUS 100/50 [Concomitant]
     Route: 065
  24. SINGULAIR [Concomitant]
     Route: 048
  25. PREDNISONE [Concomitant]
     Indication: SYSTEMIC LUPUS ERYTHEMATOSUS
     Route: 065
  26. ACTONEL [Concomitant]
     Route: 065
  27. DAYPRO [Concomitant]
     Route: 065
     Dates: start: 19991001, end: 20041001
  28. ENBREL [Concomitant]
     Route: 065
     Dates: start: 20001101, end: 20020601
  29. METHOTREXATE [Concomitant]
     Route: 065
     Dates: start: 19991201, end: 20000301

REACTIONS (13)
  - ANGINA PECTORIS [None]
  - BLOOD CHOLESTEROL INCREASED [None]
  - CARDIAC DISORDER [None]
  - CONSTIPATION [None]
  - DYSPHAGIA [None]
  - DYSPNOEA [None]
  - FATIGUE [None]
  - GASTROOESOPHAGEAL REFLUX DISEASE [None]
  - HAND FRACTURE [None]
  - HYPERTENSION [None]
  - MYOCARDIAL INFARCTION [None]
  - OEDEMA PERIPHERAL [None]
  - SKIN LACERATION [None]
